FAERS Safety Report 19317147 (Version 2)
Quarter: 2021Q2

REPORT INFORMATION
  Report Type: Report from Study
  Country: US (occurrence: US)
  Receive Date: 20210527
  Receipt Date: 20210609
  Transmission Date: 20210717
  Serious: Yes (Death)
  Sender: FDA-Public Use
  Company Number: US-JNJFOC-20210541264

PATIENT
  Age: 46 Year
  Sex: Male
  Weight: 135.75 kg

DRUGS (22)
  1. METFORMIN [Concomitant]
     Active Substance: METFORMIN HYDROCHLORIDE
  2. CLONAZEPAM. [Concomitant]
     Active Substance: CLONAZEPAM
  3. LIPITOR [Concomitant]
     Active Substance: ATORVASTATIN CALCIUM
  4. TORADOL [Concomitant]
     Active Substance: KETOROLAC TROMETHAMINE
  5. OXYCODONE AND ACETAMINOPHEN [Concomitant]
     Active Substance: ACETAMINOPHEN\OXYCODONE HYDROCHLORIDE
  6. BUPROPION. [Concomitant]
     Active Substance: BUPROPION
  7. ALLOPURINOL. [Concomitant]
     Active Substance: ALLOPURINOL
  8. SPRAVATO [Suspect]
     Active Substance: ESKETAMINE
     Indication: DEPRESSION
     Dates: start: 20210504, end: 20210514
  9. PRAZOSIN. [Concomitant]
     Active Substance: PRAZOSIN
  10. PANTOPRAZOLE [Concomitant]
     Active Substance: PANTOPRAZOLE
  11. ARIPIPRAZOLE. [Concomitant]
     Active Substance: ARIPIPRAZOLE
  12. XANAX [Concomitant]
     Active Substance: ALPRAZOLAM
  13. FLOMAX [Concomitant]
     Active Substance: TAMSULOSIN HYDROCHLORIDE
  14. LISINOPRIL. [Concomitant]
     Active Substance: LISINOPRIL
  15. TADALAFIL. [Concomitant]
     Active Substance: TADALAFIL
  16. ONDANSETRON [Concomitant]
     Active Substance: ONDANSETRON
  17. TRULICITY [Concomitant]
     Active Substance: DULAGLUTIDE
  18. CHOLINE [Concomitant]
     Active Substance: CHOLINE
  19. SERTRALINE [Concomitant]
     Active Substance: SERTRALINE HYDROCHLORIDE
  20. NOVOLOG [Concomitant]
     Active Substance: INSULIN ASPART
     Dosage: 70/30
  21. METOPROLOL. [Concomitant]
     Active Substance: METOPROLOL
  22. LATUDA [Concomitant]
     Active Substance: LURASIDONE HYDROCHLORIDE

REACTIONS (1)
  - Diabetes mellitus [Fatal]

NARRATIVE: CASE EVENT DATE: 20210518
